FAERS Safety Report 18533361 (Version 1)
Quarter: 2020Q4

REPORT INFORMATION
  Report Type: Spontaneous
  Country: US (occurrence: US)
  Receive Date: 20201120
  Receipt Date: 20201120
  Transmission Date: 20210114
  Serious: Yes (Disabling)
  Sender: FDA-Public Use
  Company Number: None

PATIENT
  Age: 74 Year
  Sex: Female
  Weight: 63 kg

DRUGS (8)
  1. VITAMIN B2 [Concomitant]
     Active Substance: RIBOFLAVIN
  2. VITAMIN [Concomitant]
     Active Substance: VITAMINS
  3. LEVOXYL [Concomitant]
     Active Substance: LEVOTHYROXINE SODIUM
  4. ALEVE [Concomitant]
     Active Substance: NAPROXEN SODIUM
  5. ESTROGEN [Concomitant]
     Active Substance: ESTROGENS
  6. ACID REDUCER [Concomitant]
  7. AIMOVIG [Suspect]
     Active Substance: ERENUMAB-AOOE
     Indication: MIGRAINE PROPHYLAXIS
     Dosage: ?          OTHER FREQUENCY:ONCE PER MONTH;?
     Route: 058
     Dates: start: 20190901, end: 20200501
  8. LORATADINE. [Concomitant]
     Active Substance: LORATADINE

REACTIONS (7)
  - Fatigue [None]
  - Rectal haemorrhage [None]
  - Hot flush [None]
  - Therapy cessation [None]
  - Nail discolouration [None]
  - Exercise tolerance decreased [None]
  - Chills [None]

NARRATIVE: CASE EVENT DATE: 20200504
